FAERS Safety Report 24750442 (Version 1)
Quarter: 2024Q4

REPORT INFORMATION
  Report Type: Spontaneous
  Country: US (occurrence: US)
  Receive Date: 20241218
  Receipt Date: 20241218
  Transmission Date: 20250115
  Serious: No
  Sender: STALLERGENES
  Company Number: US-STALCOR-2024-AER-02919

PATIENT
  Age: 58 Year
  Sex: Male
  Weight: 97.52 kg

DRUGS (29)
  1. BERMUDA GRASS, STANDARDIZED [Suspect]
     Active Substance: CYNODON DACTYLON POLLEN
     Indication: Product used for unknown indication
     Route: 058
     Dates: start: 20240314, end: 20240507
  2. RAGWEED MIXTURE [Suspect]
     Active Substance: AMBROSIA ARTEMISIIFOLIA POLLEN\AMBROSIA BIDENTATA POLLEN\AMBROSIA PSILOSTACHYA POLLEN\AMBROSIA TRIFI
     Indication: Product used for unknown indication
     Route: 058
     Dates: start: 20240314, end: 20240507
  3. JOHNSON GRASS [Suspect]
     Active Substance: SORGHUM HALEPENSE POLLEN
     Indication: Product used for unknown indication
     Route: 058
     Dates: start: 20240314, end: 20240507
  4. DILUENT (SODIUM CHLORIDE) [Suspect]
     Active Substance: SODIUM CHLORIDE
     Route: 058
     Dates: start: 20240314, end: 20240507
  5. ACCU-CHEK SOFTCLIX LANCETS [Concomitant]
     Indication: Product used for unknown indication
  6. AMLODIPINE [Concomitant]
     Active Substance: AMLODIPINE BESYLATE
     Indication: Product used for unknown indication
  7. AMOXICILLIN POTASSIUM/ CLAVULANATE [Concomitant]
     Indication: Product used for unknown indication
     Dosage: FOR 7 DAYS
     Route: 048
  8. ATORVASTATIN [Concomitant]
     Active Substance: ATORVASTATIN
     Indication: Product used for unknown indication
  9. CHLORTHALIDONE [Concomitant]
     Active Substance: CHLORTHALIDONE
     Indication: Product used for unknown indication
     Dosage: IN THE MORNING
     Route: 048
  10. CLOBETASOL SCALP SOLUTION [Concomitant]
     Indication: Product used for unknown indication
     Dosage: APPLY TO AFFECTED AREA TWICE A DAY
     Route: 061
  11. CYCLOBENZAPRINE [Concomitant]
     Active Substance: CYCLOBENZAPRINE
     Indication: Product used for unknown indication
     Dosage: AS NEEDED FOR 90 DAYS
     Route: 048
  12. DOXYCYCLINE HYCLATE [Concomitant]
     Active Substance: DOXYCYCLINE HYCLATE
     Indication: Product used for unknown indication
     Dosage: FOR 10 DAYS
     Route: 048
  13. FLUTICASONE PROPIONATE [Concomitant]
     Active Substance: FLUTICASONE PROPIONATE
     Indication: Product used for unknown indication
     Route: 045
  14. GLIMEPIRIDE [Concomitant]
     Active Substance: GLIMEPIRIDE
     Indication: Product used for unknown indication
  15. HYDROCHLOROTHIAZIDE [Concomitant]
     Active Substance: HYDROCHLOROTHIAZIDE
     Indication: Product used for unknown indication
     Route: 048
  16. HYDROCODONE BITARTRATE AND ACETAMINOPHEN [Concomitant]
     Active Substance: ACETAMINOPHEN\HYDROCODONE BITARTRATE
     Indication: Product used for unknown indication
     Dosage: AS DIRECTED FOR 30 DAYS
     Route: 048
  17. IPRATROPIUM BROMIDE [Concomitant]
     Active Substance: IPRATROPIUM BROMIDE
     Indication: Product used for unknown indication
     Dosage: USE TWO SPRAYS IN EACH NOSTRIL TWICE A DAY
     Route: 045
  18. LAC-HYDRIN LOTION [Concomitant]
     Indication: Product used for unknown indication
     Dosage: ONE APPLICATION TO AFFECTED AREA TWICE A DAY, EXTERNALLY
     Route: 061
  19. LACTULOSE [Concomitant]
     Active Substance: LACTULOSE
     Indication: Product used for unknown indication
     Dosage: AS NEEDED
     Route: 048
  20. LEVOCETIRIZINE [Concomitant]
     Active Substance: LEVOCETIRIZINE
     Indication: Product used for unknown indication
     Dosage: IN THE EVENING
     Route: 048
  21. LOSARTAN [Concomitant]
     Active Substance: LOSARTAN
     Indication: Product used for unknown indication
  22. MELOXICAM [Concomitant]
     Active Substance: MELOXICAM
     Indication: Product used for unknown indication
     Route: 048
  23. METOCLOPRAMIDE [Concomitant]
     Active Substance: METOCLOPRAMIDE
     Indication: Product used for unknown indication
  24. NYSTATIN [Concomitant]
     Active Substance: NYSTATIN
     Indication: Product used for unknown indication
     Dosage: EXTERNALLY
     Route: 061
  25. PIOGLITAZONE [Concomitant]
     Active Substance: PIOGLITAZONE
     Indication: Product used for unknown indication
  26. SERTRALINE [Concomitant]
     Active Substance: SERTRALINE HYDROCHLORIDE
     Indication: Product used for unknown indication
  27. TRIAMCINOLONE ACETONIDE [Concomitant]
     Active Substance: TRIAMCINOLONE ACETONIDE
     Indication: Product used for unknown indication
     Dosage: APPLY TO AFFCTED AREA TWICE A DAY AS DIRECTED
     Route: 061
  28. TRUEPLUS LANCETS 33 GAUGE [Concomitant]
     Indication: Product used for unknown indication
  29. CIPRO [Concomitant]
     Active Substance: CIPROFLOXACIN HYDROCHLORIDE
     Indication: Product used for unknown indication
     Route: 048

REACTIONS (3)
  - Blister [Unknown]
  - Rash [Unknown]
  - Adverse reaction [Unknown]

NARRATIVE: CASE EVENT DATE: 20240321
